FAERS Safety Report 24626856 (Version 1)
Quarter: 2024Q4

REPORT INFORMATION
  Report Type: Spontaneous
  Country: US (occurrence: US)
  Receive Date: 20241115
  Receipt Date: 20241115
  Transmission Date: 20250115
  Serious: No
  Sender: NOVO NORDISK
  Company Number: US-NOVOPROD-1148664

PATIENT
  Age: 75 Year
  Sex: Male

DRUGS (2)
  1. NOVOLOG [Suspect]
     Active Substance: INSULIN ASPART
     Indication: Type 1 diabetes mellitus
     Dosage: DEFECTED BATCH 15 UNITS, STARTED 02-OCT-2023, STOPPED 08-DEC-2023
     Route: 058
     Dates: start: 202308
  2. NOVOLOG [Suspect]
     Active Substance: INSULIN ASPART
     Dosage: VARIED
     Route: 058

REACTIONS (5)
  - Skin indentation [Unknown]
  - Dehydration [Not Recovered/Not Resolved]
  - Ill-defined disorder [Not Recovered/Not Resolved]
  - Diabetes mellitus inadequate control [Not Recovered/Not Resolved]
  - Product quality issue [Unknown]

NARRATIVE: CASE EVENT DATE: 20231003
